FAERS Safety Report 5890329-2 (Version None)
Quarter: 2008Q3

REPORT INFORMATION
  Report Type: 
  Country: None (occurrence: None)
  Receive Date: 20080918
  Receipt Date: 20080910
  Transmission Date: 20090109
  Serious: Yes (Hospitalization)
  Sender: FDA-Public Use
  Company Number: IPS_01277_2008

PATIENT
  Sex: Male

DRUGS (1)
  1. APOKYN [Suspect]
     Indication: DRUG USE FOR UNKNOWN INDICATION
     Dosage: 0.3 ML FREQUENCY UNKNOWN SUBCUTANEOUS
     Route: 058

REACTIONS (2)
  - BRACHIAL PLEXUS INJURY [None]
  - FALL [None]
